FAERS Safety Report 20152214 (Version 2)
Quarter: 2023Q2

REPORT INFORMATION
  Report Type: Spontaneous
  Country: US (occurrence: US)
  Receive Date: 20211206
  Receipt Date: 20230405
  Transmission Date: 20230722
  Serious: Yes (Other)
  Sender: FDA-Public Use
  Company Number: US-PFIZER INC-202101638869

PATIENT
  Age: 50 Year
  Sex: Female
  Weight: 55.329 kg

DRUGS (2)
  1. CALAN SR [Suspect]
     Active Substance: VERAPAMIL HYDROCHLORIDE
     Indication: Migraine
     Dosage: 120 MG, DAILY
     Dates: start: 1990
  2. CALAN SR [Suspect]
     Active Substance: VERAPAMIL HYDROCHLORIDE
     Dosage: 240 MG

REACTIONS (3)
  - Blindness [Not Recovered/Not Resolved]
  - Seizure [Unknown]
  - Off label use [Unknown]
